APPROVED DRUG PRODUCT: XYLOCAINE
Active Ingredient: LIDOCAINE
Strength: 5%
Dosage Form/Route: SOLUTION;TOPICAL
Application: N014127 | Product #001
Applicant: ASTRAZENECA LP
Approved: Approved Prior to Jan 1, 1982 | RLD: No | RS: No | Type: DISCN